FAERS Safety Report 4634339-1 (Version None)
Quarter: 2005Q2

REPORT INFORMATION
  Report Type: 
  Country: None (occurrence: None)
  Receive Date: 20050411
  Receipt Date: 20050404
  Transmission Date: 20051028
  Serious: Yes (Hospitalization, Other)
  Sender: FDA-Public Use
  Company Number: 2005054371

PATIENT
  Age: 65 Year
  Sex: Female
  Weight: 60 kg

DRUGS (4)
  1. ATORVASTATIN CALCIUM [Suspect]
     Indication: ILL-DEFINED DISORDER
     Dosage: 10 MG (1 IN 1 D), ORAL
     Route: 048
     Dates: start: 20021203, end: 20050315
  2. CALCIUM CARBONATE (CALCIUM CARBONATE) [Concomitant]
  3. RISEDRONIC ACID (RISEDRONIC ACID) [Concomitant]
  4. ACETAMINOPHEN [Concomitant]

REACTIONS (4)
  - BREAST CANCER RECURRENT [None]
  - FEBRILE BONE MARROW APLASIA [None]
  - SYSTEMIC LUPUS ERYTHEMATOSUS [None]
  - TOXIC SKIN ERUPTION [None]
